FAERS Safety Report 6104629-4 (Version None)
Quarter: 2009Q1

REPORT INFORMATION
  Report Type: 
  Country: None (occurrence: None)
  Receive Date: 20090303
  Receipt Date: 20090217
  Transmission Date: 20090719
  Serious: Yes (Hospitalization)
  Sender: FDA-Public Use
  Company Number: 2009S1001697

PATIENT
  Age: 67 Year
  Sex: Male
  Weight: 104.3273 kg

DRUGS (14)
  1. METOLAZONE [Suspect]
     Indication: OEDEMA PERIPHERAL
     Dosage: 2.5 MG; EVERY OTHER DAY; ORAL; 5 MG; X1;
     Route: 048
     Dates: start: 20090121, end: 20090125
  2. METOLAZONE [Suspect]
     Indication: OEDEMA PERIPHERAL
     Dosage: 2.5 MG; EVERY OTHER DAY; ORAL; 5 MG; X1;
     Route: 048
     Dates: start: 20090126, end: 20090126
  3. HYDROCHLOROTHIAZIDE [Suspect]
     Indication: OEDEMA
     Dosage: ORAL
     Route: 048
  4. LANTUS [Concomitant]
  5. NOVOLOG [Concomitant]
  6. METOPROLOL TARTRATE [Concomitant]
  7. LIPITOR [Concomitant]
  8. ALTACE [Concomitant]
  9. LYRICA [Concomitant]
  10. NIASPAN [Concomitant]
  11. AVAPRO [Concomitant]
  12. ASPIRIN [Concomitant]
  13. IRON [Concomitant]
  14. PLAVIX [Concomitant]

REACTIONS (8)
  - ANOREXIA [None]
  - ANURIA [None]
  - ASTHENIA [None]
  - BLOOD SODIUM DECREASED [None]
  - DISORIENTATION [None]
  - DYSPEPSIA [None]
  - NAUSEA [None]
  - VOMITING [None]
